FAERS Safety Report 24372839 (Version 1)
Quarter: 2024Q3

REPORT INFORMATION
  Report Type: Spontaneous
  Country: US (occurrence: US)
  Receive Date: 20240927
  Receipt Date: 20240927
  Transmission Date: 20241017
  Serious: No
  Sender: MYLAN
  Company Number: US-MYLANLABS-2024M1085205

PATIENT

DRUGS (1)
  1. METHYLPHENIDATE [Suspect]
     Active Substance: METHYLPHENIDATE
     Indication: Somnolence
     Dosage: 1.6 MILLIGRAM, QH (EVERY HOUR)
     Route: 062
     Dates: start: 202403

REACTIONS (4)
  - Off label use [Unknown]
  - Incorrect dose administered by device [Unknown]
  - Product adhesion issue [Unknown]
  - Device malfunction [Unknown]

NARRATIVE: CASE EVENT DATE: 20240301
